FAERS Safety Report 15932316 (Version 2)
Quarter: 2019Q1

REPORT INFORMATION
  Report Type: Spontaneous
  Country: US (occurrence: US)
  Receive Date: 20190207
  Receipt Date: 20190212
  Transmission Date: 20190417
  Serious: Yes (Life-Threatening)
  Sender: FDA-Public Use
  Company Number: US-PFIZER INC-2019048831

PATIENT
  Age: 46 Year
  Sex: Male
  Weight: 102 kg

DRUGS (1)
  1. INSPRA [Suspect]
     Active Substance: EPLERENONE
     Indication: HYPERTENSION
     Dosage: 150 MG, 1X/DAY
     Route: 048
     Dates: start: 20121024

REACTIONS (1)
  - Hypophosphataemia [Not Recovered/Not Resolved]

NARRATIVE: CASE EVENT DATE: 2015
